FAERS Safety Report 21974416 (Version 2)
Quarter: 2023Q2

REPORT INFORMATION
  Report Type: Report from Study
  Country: US (occurrence: US)
  Receive Date: 20230209
  Receipt Date: 20230508
  Transmission Date: 20230722
  Serious: Yes (Other)
  Sender: FDA-Public Use
  Company Number: US-BoehringerIngelheim-2022-BI-159791

PATIENT
  Age: 52 Year
  Sex: Male

DRUGS (3)
  1. OFEV [Suspect]
     Active Substance: NINTEDANIB
     Indication: Idiopathic pulmonary fibrosis
     Route: 048
     Dates: start: 20220209
  2. OFEV [Suspect]
     Active Substance: NINTEDANIB
     Route: 048
  3. TADALAFIL [Concomitant]
     Active Substance: TADALAFIL
     Indication: Product used for unknown indication

REACTIONS (13)
  - Idiopathic pulmonary fibrosis [Unknown]
  - Abdominal pain [Unknown]
  - Multiple allergies [Unknown]
  - Pneumonia [Unknown]
  - Respiratory syncytial virus infection [Unknown]
  - Abdominal pain upper [Unknown]
  - Liver function test increased [Unknown]
  - Contusion [Recovered/Resolved]
  - Nausea [Unknown]
  - Dyspepsia [Unknown]
  - Seasonal allergy [Unknown]
  - Pain [Not Recovered/Not Resolved]
  - Increased tendency to bruise [Unknown]

NARRATIVE: CASE EVENT DATE: 20220201
